FAERS Safety Report 9183334 (Version 1)
Quarter: 2013Q1

REPORT INFORMATION
  Report Type: Spontaneous
  Country: CH (occurrence: CH)
  Receive Date: 20130322
  Receipt Date: 20130322
  Transmission Date: 20140127
  Serious: Yes (Hospitalization)
  Sender: FDA-Public Use
  Company Number: CH-ELI_LILLY_AND_COMPANY-CH201303005075

PATIENT
  Age: 56 Year
  Sex: Female

DRUGS (11)
  1. CYMBALTA [Suspect]
     Indication: DEPRESSION
     Dosage: UNK
     Route: 048
  2. CYMBALTA [Suspect]
     Dosage: 150-300MG, SINGLE
     Route: 048
     Dates: start: 20130124, end: 20130124
  3. INDERAL [Concomitant]
     Indication: ESSENTIAL HYPERTENSION
     Dosage: 800 MG, UNK
     Route: 048
     Dates: start: 20130124, end: 20130124
  4. ZOLPIDEM [Concomitant]
     Indication: INSOMNIA
     Dosage: 40 MG, UNKNOWN
     Route: 048
     Dates: start: 20130124, end: 20130124
  5. CIPRALEX [Concomitant]
     Indication: DEPRESSION
     Dosage: 10 MG, BID
     Route: 048
     Dates: start: 201202
  6. ISOPTIN [Concomitant]
     Indication: ESSENTIAL HYPERTENSION
     Dosage: 120 MG, BID
     Route: 048
  7. DEMETRIN [Concomitant]
     Dosage: 10 MG, QD
     Route: 048
  8. CALCIMAGON D3 [Concomitant]
     Dosage: 1 DF, QD
     Route: 048
  9. TRITTICO [Concomitant]
     Dosage: 50 MG, QD
     Route: 048
  10. DUPHALAC [Concomitant]
     Dosage: 1 DF, UNK
     Route: 048
  11. LAXOBERON [Concomitant]
     Dosage: UNK
     Route: 048

REACTIONS (6)
  - Suicide attempt [Recovered/Resolved]
  - Electrocardiogram QT prolonged [Recovered/Resolved]
  - Bradycardia [Recovering/Resolving]
  - Hypotension [Recovering/Resolving]
  - Apathy [Unknown]
  - Intentional overdose [Unknown]
